FAERS Safety Report 10025028 (Version 2)
Quarter: 2014Q1

REPORT INFORMATION
  Report Type: Spontaneous
  Country: US (occurrence: US)
  Receive Date: 20140320
  Receipt Date: 20140329
  Transmission Date: 20141002
  Serious: Yes (Hospitalization)
  Sender: FDA-Public Use
  Company Number: 2014SP001369

PATIENT
  Age: 11 Year
  Sex: Female
  Weight: 46.2 kg

DRUGS (3)
  1. TOPOTECAN [Suspect]
     Indication: EWING^S SARCOMA
     Dates: start: 20131122, end: 20131126
  2. CRIZOTINIB [Suspect]
     Indication: EWING^S SARCOMA
     Dates: start: 20131122, end: 20131128
  3. CYCLOPHOSPHAMIDE [Suspect]
     Indication: EWING^S SARCOMA
     Dates: start: 20131122, end: 20131126

REACTIONS (4)
  - Nausea [Recovered/Resolved]
  - Hypophagia [Recovered/Resolved]
  - Dehydration [Recovered/Resolved]
  - Vomiting [Recovered/Resolved]
